FAERS Safety Report 8059291-0 (Version None)
Quarter: 2012Q1

REPORT INFORMATION
  Report Type: 
  Country: None (occurrence: None)
  Receive Date: 20120119
  Receipt Date: 20120119
  Transmission Date: 20120608
  Serious: No
  Sender: FDA-Public Use
  Company Number: None

PATIENT
  Age: 46 Year
  Sex: Female
  Weight: 56.8 kg

DRUGS (1)
  1. LAMOTRIGINE [Suspect]
     Indication: BIPOLAR DISORDER
     Dosage: 4 TABLETS OF 25 MG EAC ONCE DAY BY MOUTH
     Route: 048
     Dates: start: 20111001, end: 20111201

REACTIONS (5)
  - AGITATION [None]
  - NAUSEA [None]
  - VOMITING [None]
  - PRODUCT SUBSTITUTION ISSUE [None]
  - ANXIETY [None]
